FAERS Safety Report 26148994 (Version 1)
Quarter: 2025Q4

REPORT INFORMATION
  Report Type: Report from Study
  Country: US (occurrence: US)
  Receive Date: 20251212
  Receipt Date: 20251212
  Transmission Date: 20260117
  Serious: Yes (Other)
  Sender: ABBVIE
  Company Number: US-ABBVIE-6583140

PATIENT
  Age: 66 Year
  Sex: Female

DRUGS (1)
  1. SKYRIZI [Suspect]
     Active Substance: RISANKIZUMAB-RZAA
     Indication: Product used for unknown indication
     Route: 058
     Dates: start: 20191014

REACTIONS (4)
  - Retinal tear [Recovering/Resolving]
  - Acne [Not Recovered/Not Resolved]
  - Skin lesion [Not Recovered/Not Resolved]
  - Animal scratch [Unknown]

NARRATIVE: CASE EVENT DATE: 20250809
